FAERS Safety Report 7121137-2 (Version None)
Quarter: 2010Q4

REPORT INFORMATION
  Report Type: 
  Country: None (occurrence: None)
  Receive Date: 20101124
  Receipt Date: 20101117
  Transmission Date: 20110411
  Serious: Yes (Other)
  Sender: FDA-Public Use
  Company Number: IT-MILLENNIUM PHARMACEUTICALS, INC.-2010-05551

PATIENT

DRUGS (3)
  1. VELCADE [Suspect]
     Indication: MULTIPLE MYELOMA
     Dosage: 2.2 MG, CYCLIC
     Route: 042
     Dates: start: 20100903, end: 20100910
  2. MELPHALAN HYDROCHLORIDE [Concomitant]
     Dosage: 16 MG, UNK
     Route: 048
     Dates: start: 20100903, end: 20100906
  3. PREDNISONE [Concomitant]
     Dosage: 105 MG, UNK
     Route: 048
     Dates: start: 20100903, end: 20100906

REACTIONS (3)
  - DIARRHOEA [None]
  - ORTHOSTATIC HYPOTENSION [None]
  - WEIGHT DECREASED [None]
